FAERS Safety Report 7978758-4 (Version None)
Quarter: 2011Q4

REPORT INFORMATION
  Report Type: 
  Country: None (occurrence: None)
  Receive Date: 20111214
  Receipt Date: 20111212
  Transmission Date: 20120403
  Serious: Yes (Other)
  Sender: FDA-Public Use
  Company Number: JP-PFIZER INC-2011291269

PATIENT
  Age: 45 Year
  Sex: Male

DRUGS (6)
  1. METININ [Concomitant]
     Dosage: UNK
  2. TOFRANIL [Concomitant]
     Dosage: UNK
  3. BAYCARON [Concomitant]
     Dosage: UNK
  4. ALPRAZOLAM [Suspect]
     Dosage: 0.4 MG (1 TABLET) FOUR TIMES DAILY
  5. CORINAEL L [Concomitant]
     Dosage: UNK
  6. DIAZEPAM [Concomitant]
     Dosage: UNK

REACTIONS (1)
  - ELECTROCARDIOGRAM T WAVE ABNORMAL [None]
